FAERS Safety Report 7179371-1 (Version None)
Quarter: 2010Q4

REPORT INFORMATION
  Report Type: 
  Country: None (occurrence: None)
  Receive Date: 20101221
  Receipt Date: 20101207
  Transmission Date: 20110411
  Serious: Yes (Other)
  Sender: FDA-Public Use
  Company Number: PHHY2010US80057

PATIENT
  Sex: Male
  Weight: 100 kg

DRUGS (2)
  1. GLEEVEC [Suspect]
     Indication: CHRONIC MYELOID LEUKAEMIA
     Dosage: 400 MG/ DAILY
     Route: 048
     Dates: start: 20100119
  2. GLEEVEC [Suspect]
     Dosage: UNK

REACTIONS (1)
  - ANKLE FRACTURE [None]
